FAERS Safety Report 7294815-2 (Version None)
Quarter: 2011Q1

REPORT INFORMATION
  Report Type: 
  Country: None (occurrence: None)
  Receive Date: 20110216
  Receipt Date: 20101220
  Transmission Date: 20110831
  Serious: Yes (Hospitalization, Other)
  Sender: FDA-Public Use
  Company Number: US-BAYER-201029356NA

PATIENT
  Sex: Female
  Weight: 52.154 kg

DRUGS (10)
  1. KEPPRA [Concomitant]
     Dosage: 750 MG, BID
  2. LAMICTAL [Concomitant]
     Dosage: 100 MG, QD
  3. YAZ [Suspect]
     Indication: PRODUCT USED FOR UNKNOWN INDICATION
     Route: 048
     Dates: start: 20061222, end: 20100101
  4. YASMIN [Suspect]
     Indication: MENSTRUATION IRREGULAR
     Route: 048
     Dates: start: 20061222, end: 20100101
  5. OCELLA [Suspect]
     Indication: PRODUCT USED FOR UNKNOWN INDICATION
     Route: 048
     Dates: start: 20061222, end: 20100101
  6. YASMIN [Suspect]
     Indication: ORAL CONTRACEPTION
  7. UNCODEABLE ^UNCLASSIFIABLE^ [Concomitant]
  8. UNCODEABLE ^UNCLASSIFIABLE^ [Concomitant]
     Dosage: 100 MG, QD
  9. MIRALAX [Concomitant]
     Dosage: UNK UNK, QD
  10. FOLATE SODIUM [Concomitant]
     Dosage: 2 MG, QD

REACTIONS (7)
  - GALLBLADDER CHOLESTEROLOSIS [None]
  - ABDOMINAL PAIN [None]
  - CHOLELITHIASIS [None]
  - CHOLECYSTITIS CHRONIC [None]
  - POST CHOLECYSTECTOMY SYNDROME [None]
  - GASTROINTESTINAL DISORDER [None]
  - ABDOMINAL PAIN UPPER [None]
